FAERS Safety Report 16434021 (Version 4)
Quarter: 2019Q4

REPORT INFORMATION
  Report Type: Spontaneous
  Country: US (occurrence: US)
  Receive Date: 20190614
  Receipt Date: 20191120
  Transmission Date: 20200122
  Serious: Yes (Hospitalization)
  Sender: FDA-Public Use
  Company Number: US-ALNYLAM PHARMACEUTICALS, INC.-ALN-2019-000423

PATIENT
  Sex: Male

DRUGS (1)
  1. ONPATTRO [Suspect]
     Active Substance: PATISIRAN SODIUM
     Indication: HEREDITARY NEUROPATHIC AMYLOIDOSIS
     Dosage: UNK, Q3W
     Route: 042
     Dates: start: 20190531

REACTIONS (11)
  - Hypotension [Recovered/Resolved]
  - Syncope [Recovered/Resolved]
  - Neuropathy peripheral [Unknown]
  - Muscle atrophy [Unknown]
  - Walking aid user [Unknown]
  - Gait disturbance [Unknown]
  - Carpal tunnel syndrome [Not Recovered/Not Resolved]
  - Intentional dose omission [Unknown]
  - Hypertension [Unknown]
  - Weight increased [Unknown]
  - Increased appetite [Unknown]
